FAERS Safety Report 6158538-5 (Version None)
Quarter: 2009Q2

REPORT INFORMATION
  Report Type: 
  Country: None (occurrence: None)
  Receive Date: 20090417
  Receipt Date: 20090415
  Transmission Date: 20091009
  Serious: Yes (Death, Other)
  Sender: FDA-Public Use
  Company Number: PHHY2009DE14120

PATIENT
  Age: 6 Hour
  Sex: Male
  Weight: 3.5 kg

DRUGS (3)
  1. CYCLOSPORINE [Suspect]
     Indication: LIVER TRANSPLANT
     Dosage: 5 MG/KG, BID
  2. BASILIXIMAB [Suspect]
     Indication: LIVER TRANSPLANT
  3. PREDNISOLONE [Suspect]
     Indication: LIVER TRANSPLANT

REACTIONS (10)
  - CONVULSION [None]
  - GASTROENTERITIS NOROVIRUS [None]
  - HAEMODIALYSIS [None]
  - HYPERAMMONAEMIA [None]
  - HYPOPHOSPHATAEMIA [None]
  - IMMUNOSUPPRESSANT DRUG LEVEL DECREASED [None]
  - INFECTION [None]
  - LIVER TRANSPLANT REJECTION [None]
  - METABOLIC DISORDER [None]
  - UPPER RESPIRATORY TRACT INFECTION [None]
